FAERS Safety Report 6535887-X (Version None)
Quarter: 2010Q1

REPORT INFORMATION
  Report Type: 
  Country: None (occurrence: None)
  Receive Date: 20100106
  Receipt Date: 20091228
  Transmission Date: 20100710
  Serious: Yes (Other)
  Sender: FDA-Public Use
  Company Number: LI02009017

PATIENT
  Age: 57 Year
  Sex: Female
  Weight: 84.8226 kg

DRUGS (5)
  1. LIOTHYRONINE SODIUM [Suspect]
     Indication: HYPOTHYROIDISM
     Dosage: 10 MCG, BID, ORAL
     Route: 048
     Dates: start: 20091207, end: 20091224
  2. MULTI-VITAMINS [Concomitant]
  3. NATURE THYROID [Concomitant]
  4. ESTRADIOL [Concomitant]
  5. PROGESTERONE [Concomitant]

REACTIONS (6)
  - BRONCHOSPASM [None]
  - COUGH [None]
  - DRUG HYPERSENSITIVITY [None]
  - LIP SWELLING [None]
  - SELF-MEDICATION [None]
  - URTICARIA [None]
